FAERS Safety Report 4621892-7 (Version None)
Quarter: 2005Q1

REPORT INFORMATION
  Report Type: 
  Country: None (occurrence: None)
  Receive Date: 20050329
  Receipt Date: 20050318
  Transmission Date: 20050727
  Serious: Yes (Other)
  Sender: FDA-Public Use
  Company Number: US-GLAXOSMITHKLINE-A0550514A

PATIENT
  Sex: Female

DRUGS (5)
  1. ADVAIR DISKUS 100/50 [Suspect]
     Indication: ASTHMA
     Dosage: 1PUFF PER DAY
     Route: 055
     Dates: start: 20040922, end: 20041201
  2. BIRTH CONTROL PILLS [Concomitant]
     Route: 065
  3. CALCIUM GLUCONATE [Concomitant]
     Route: 065
  4. CENTRUM [Concomitant]
     Route: 048
  5. FERROUS SULFATE TAB [Concomitant]
     Route: 065

REACTIONS (3)
  - IRRITABILITY [None]
  - PANIC ATTACK [None]
  - VISUAL ACUITY REDUCED [None]
